FAERS Safety Report 6874757-4 (Version None)
Quarter: 2010Q3

REPORT INFORMATION
  Report Type: 
  Country: None (occurrence: None)
  Receive Date: 20100723
  Receipt Date: 20100702
  Transmission Date: 20110219
  Serious: Yes (Death, Hospitalization)
  Sender: FDA-Public Use
  Company Number: WAES 1007USA00362

PATIENT

DRUGS (2)
  1. ISENTRESS [Suspect]
     Indication: HIV INFECTION
     Dosage: 400 MG/BID/PO
     Route: 048
     Dates: start: 20080101, end: 20090101
  2. MARAVIROC [Concomitant]

REACTIONS (3)
  - CYTOMEGALOVIRUS INFECTION [None]
  - IMMUNE RECONSTITUTION SYNDROME [None]
  - LYMPHOMA [None]
